FAERS Safety Report 18980870 (Version 2)
Quarter: 2021Q3

REPORT INFORMATION
  Report Type: Report from Study
  Country: US (occurrence: US)
  Receive Date: 20210308
  Receipt Date: 20210810
  Transmission Date: 20211014
  Serious: No
  Sender: FDA-Public Use
  Company Number: US-GW PHARMA-202103USGW00900

PATIENT

DRUGS (1)
  1. EPIDIOLEX [Suspect]
     Active Substance: CANNABIDIOL
     Indication: PRODUCT USED FOR UNKNOWN INDICATION
     Dosage: 8.82 MG/KG/DAY, 400 MILLIGRAM, BID
     Route: 048
     Dates: end: 20201112

REACTIONS (3)
  - Regurgitation [Unknown]
  - Drug ineffective [Unknown]
  - Insomnia [Unknown]
